FAERS Safety Report 26095726 (Version 2)
Quarter: 2025Q4

REPORT INFORMATION
  Report Type: Spontaneous
  Country: US (occurrence: US)
  Receive Date: 20251127
  Receipt Date: 20251212
  Transmission Date: 20260117
  Serious: Yes (Other)
  Sender: AZURITY PHARMACEUTICALS
  Company Number: US-AZURITY PHARMACEUTICALS, INC.-AZR202511-003538

PATIENT
  Age: 3 Year
  Sex: Female

DRUGS (10)
  1. METHYLPREDNISOLONE ACETATE [Suspect]
     Active Substance: METHYLPREDNISOLONE ACETATE
     Indication: Still^s disease
     Dosage: 30 MILLIGRAM/KILOGRAM, WEEKLY
     Route: 042
  2. ARUMAKIMIG [Suspect]
     Active Substance: ARUMAKIMIG
     Indication: Product used for unknown indication
     Dosage: 10 MILLIGRAM/KILOGRAM EVERY TWO WEEKS
     Route: 065
  3. JAKAFI [Suspect]
     Active Substance: RUXOLITINIB
     Indication: Still^s disease
     Dosage: UNK
     Route: 065
  4. JAKAFI [Suspect]
     Active Substance: RUXOLITINIB
     Dosage: UNK (DOSE HAS BEEN SEQUENTIALLY INCREASED)
     Route: 065
  5. JAKAFI [Suspect]
     Active Substance: RUXOLITINIB
     Dosage: 20 MG EVERY MORNING AND 15 MG EVERY EVENING (EXTREMELY HIGH DOSE)
     Route: 065
  6. PREDNISOLONE [Suspect]
     Active Substance: PREDNISOLONE
     Indication: Still^s disease
     Dosage: DAILY DOSE VARIABLE, CURRENTLY APPROXIMATELY 0.5MG/KG
     Route: 065
  7. VALACYCLOVIR [Suspect]
     Active Substance: VALACYCLOVIR HYDROCHLORIDE
     Indication: Prophylaxis
     Dosage: UNK
     Route: 065
  8. BACTRIM [Suspect]
     Active Substance: SULFAMETHOXAZOLE\TRIMETHOPRIM
     Indication: Prophylaxis
     Dosage: UNK
     Route: 065
  9. CANAKINUMAB [Suspect]
     Active Substance: CANAKINUMAB
     Indication: Still^s disease
     Dosage: UNK
     Route: 065
  10. TOCILIZUMAB [Suspect]
     Active Substance: TOCILIZUMAB
     Indication: Still^s disease
     Dosage: UNK
     Route: 065

REACTIONS (8)
  - Still^s disease [Unknown]
  - Condition aggravated [Unknown]
  - Lung disorder [Unknown]
  - Clubbing [Unknown]
  - Pulmonary septal thickening [Unknown]
  - Drug resistance [Unknown]
  - Cough [Unknown]
  - Off label use [Unknown]

NARRATIVE: CASE EVENT DATE: 20220101
